FAERS Safety Report 9218059 (Version 5)
Quarter: 2013Q2

REPORT INFORMATION
  Report Type: Spontaneous
  Country: US (occurrence: US)
  Receive Date: 20130408
  Receipt Date: 20130522
  Transmission Date: 20140414
  Serious: Yes (Hospitalization)
  Sender: FDA-Public Use
  Company Number: US-GILEAD-2013-0072796

PATIENT
  Age: 35 Year
  Sex: Female

DRUGS (3)
  1. LETAIRIS [Suspect]
     Indication: PRODUCT USED FOR UNKNOWN INDICATION
     Dosage: 5 MG, QD
     Route: 048
     Dates: start: 20070720
  2. REMODULIN [Concomitant]
  3. COUMADIN                           /00014802/ [Concomitant]

REACTIONS (12)
  - Pneumonia [Unknown]
  - Pyrexia [Unknown]
  - Chest pain [Unknown]
  - Heart rate increased [Unknown]
  - Cough [Unknown]
  - Unevaluable event [Unknown]
  - Heart rate increased [Recovering/Resolving]
  - Feeling abnormal [Unknown]
  - Oropharyngeal pain [Unknown]
  - Dyspnoea [Unknown]
  - Asthenia [Unknown]
  - Oedema peripheral [Unknown]
